FAERS Safety Report 8879661 (Version 2)
Quarter: 2012Q4

REPORT INFORMATION
  Report Type: 
  Country: JP (occurrence: JP)
  Receive Date: 20121101
  Receipt Date: 20121108
  Transmission Date: 20130627
  Serious: Yes (Hospitalization)
  Sender: FDA-Public Use
  Company Number: JP-ASTELLAS-2012JP010109

PATIENT
  Age: 81 Year
  Sex: Female

DRUGS (5)
  1. PROGRAF [Suspect]
     Indication: RHEUMATOID ARTHRITIS
     Dosage: 1.5 mg, Unknown/D
     Route: 048
     Dates: end: 20121025
  2. BONALON [Suspect]
     Dosage: UNK
     Route: 048
  3. PREDNISOLONE [Suspect]
     Dosage: 4 mg, Unknown/D
     Route: 048
  4. LENDORMIN [Suspect]
     Dosage: UNK
     Route: 048
  5. ENBREL [Suspect]
     Dosage: 5 mg, Unknown/D
     Route: 058

REACTIONS (1)
  - Fracture [Not Recovered/Not Resolved]
